FAERS Safety Report 5850254-X (Version None)
Quarter: 2008Q3

REPORT INFORMATION
  Report Type: 
  Country: None (occurrence: None)
  Receive Date: 20080819
  Receipt Date: 20080811
  Transmission Date: 20090109
  Serious: Yes (Other)
  Sender: FDA-Public Use
  Company Number: PHBS2008US05396

PATIENT
  Age: 8 Year
  Sex: Male

DRUGS (1)
  1. PAMIDRONATE DISODIUM [Suspect]
     Indication: OSTEOPOROSIS-PSEUDOGLIOMA SYNDROME
     Dosage: 1 MG/KG OVER 3H
     Route: 042

REACTIONS (2)
  - DRUG TOLERANCE [None]
  - FEMUR FRACTURE [None]
